FAERS Safety Report 19242867 (Version 1)
Quarter: 2021Q2

REPORT INFORMATION
  Report Type: Spontaneous
  Country: US (occurrence: US)
  Receive Date: 20210511
  Receipt Date: 20210511
  Transmission Date: 20210717
  Serious: Yes (Hospitalization)
  Sender: FDA-Public Use
  Company Number: None

PATIENT
  Sex: Female

DRUGS (12)
  1. AMLODIPINE [Concomitant]
     Active Substance: AMLODIPINE BESYLATE
  2. EZETIMIBE. [Concomitant]
     Active Substance: EZETIMIBE
  3. FOLIC ACID. [Concomitant]
     Active Substance: FOLIC ACID
  4. GABAPENTIN. [Concomitant]
     Active Substance: GABAPENTIN
  5. TRULICITY [Concomitant]
     Active Substance: DULAGLUTIDE
  6. HUMIRA [Suspect]
     Active Substance: ADALIMUMAB
     Indication: PSORIASIS
     Dosage: ?          OTHER FREQUENCY:EVERY OTHER WEEK;?
     Route: 058
  7. METFORMIN [Concomitant]
     Active Substance: METFORMIN HYDROCHLORIDE
  8. CARVEDILOL. [Concomitant]
     Active Substance: CARVEDILOL
  9. BASAGLAR [Concomitant]
     Active Substance: INSULIN GLARGINE
  10. TRIAMCINOLONE [Concomitant]
     Active Substance: TRIAMCINOLONE
  11. HYDROCHLOROTHIAZIDE. [Concomitant]
     Active Substance: HYDROCHLOROTHIAZIDE
  12. LEVETIRACETAM. [Concomitant]
     Active Substance: LEVETIRACETAM

REACTIONS (2)
  - Platelet count decreased [None]
  - Cerebrovascular accident [None]
